FAERS Safety Report 25764857 (Version 1)
Quarter: 2025Q3

REPORT INFORMATION
  Report Type: Spontaneous
  Country: US (occurrence: US)
  Receive Date: 20250905
  Receipt Date: 20250905
  Transmission Date: 20251021
  Serious: No
  Sender: RANBAXY
  Company Number: US-SUN PHARMACEUTICAL INDUSTRIES LTD-2024R1-470701

PATIENT
  Sex: Male

DRUGS (2)
  1. ALBUTEROL [Suspect]
     Active Substance: ALBUTEROL
     Indication: Product used for unknown indication
     Dosage: UNK UNK, TID
     Route: 065
  2. Syncope [Concomitant]
     Indication: Product used for unknown indication
     Route: 065

REACTIONS (2)
  - Feeling jittery [Unknown]
  - Tremor [Unknown]
